FAERS Safety Report 17769365 (Version 1)
Quarter: 2020Q2

REPORT INFORMATION
  Report Type: Spontaneous
  Country: CA (occurrence: CA)
  Receive Date: 20200512
  Receipt Date: 20200512
  Transmission Date: 20200714
  Serious: Yes (Other)
  Sender: FDA-Public Use
  Company Number: CA-TEVA-2020-CA-1233593

PATIENT
  Age: 48 Year
  Sex: Female

DRUGS (16)
  1. IBRANCE [Suspect]
     Active Substance: PALBOCICLIB
     Route: 048
  2. ATIVAN [Concomitant]
     Active Substance: LORAZEPAM
  3. STATEX [Concomitant]
  4. IBRANCE [Suspect]
     Active Substance: PALBOCICLIB
     Indication: BREAST CANCER METASTATIC
     Route: 048
  5. IBRANCE [Suspect]
     Active Substance: PALBOCICLIB
     Route: 048
  6. ERGOCALCIFEROL. [Concomitant]
     Active Substance: ERGOCALCIFEROL
  7. ANASTROZOLE. [Suspect]
     Active Substance: ANASTROZOLE
     Indication: PRODUCT USED FOR UNKNOWN INDICATION
     Route: 048
  8. METOCLOPRAMIDE HYDROCHLORIDE. [Concomitant]
     Active Substance: METOCLOPRAMIDE HYDROCHLORIDE
  9. CALCIUM CARBONATE. [Concomitant]
     Active Substance: CALCIUM CARBONATE
  10. MACROGOL [Concomitant]
     Active Substance: POLYETHYLENE GLYCOLS
  11. NASONEX [Concomitant]
     Active Substance: MOMETASONE FUROATE
  12. ADVIL [Concomitant]
     Active Substance: IBUPROFEN
  13. TAMOXIFEN [Suspect]
     Active Substance: TAMOXIFEN
     Indication: PRODUCT USED FOR UNKNOWN INDICATION
     Route: 048
  14. TAMOXIFEN [Suspect]
     Active Substance: TAMOXIFEN
     Route: 048
  15. LETROZOLE. [Concomitant]
     Active Substance: LETROZOLE
  16. TAXOL [Concomitant]
     Active Substance: PACLITAXEL

REACTIONS (9)
  - Myalgia [Recovered/Resolved]
  - Upper respiratory tract infection [Recovered/Resolved]
  - Dyspnoea [Recovered/Resolved]
  - Neutropenia [Recovered/Resolved]
  - Neoplasm recurrence [Recovered/Resolved]
  - Arthralgia [Recovered/Resolved]
  - Platelet count decreased [Recovered/Resolved]
  - Stomatitis [Recovered/Resolved]
  - Fatigue [Recovered/Resolved]
